FAERS Safety Report 10523370 (Version 3)
Quarter: 2015Q1

REPORT INFORMATION
  Report Type: Spontaneous
  Country: US (occurrence: US)
  Receive Date: 20141016
  Receipt Date: 20150205
  Transmission Date: 20150720
  Serious: Yes (Hospitalization)
  Sender: FDA-Public Use
  Company Number: US-GILEAD-2014-0118784

PATIENT
  Age: 68 Year
  Sex: Male

DRUGS (1)
  1. LETAIRIS [Suspect]
     Active Substance: AMBRISENTAN
     Indication: LEFT VENTRICULAR DYSFUNCTION
     Dosage: 5 MG, QD
     Route: 065
     Dates: start: 20110209

REACTIONS (5)
  - Fall [Unknown]
  - Dizziness [Unknown]
  - Off label use [Unknown]
  - Insomnia [Unknown]
  - Fluid retention [Unknown]
